FAERS Safety Report 19701316 (Version 3)
Quarter: 2021Q4

REPORT INFORMATION
  Report Type: Spontaneous
  Country: GR (occurrence: GR)
  Receive Date: 20210813
  Receipt Date: 20211104
  Transmission Date: 20220303
  Serious: Yes (Hospitalization, Other)
  Sender: FDA-Public Use
  Company Number: GR-MYLANLABS-2021M1049859

PATIENT
  Age: 39 Year
  Sex: Female

DRUGS (8)
  1. QUETIAPINE [Suspect]
     Active Substance: QUETIAPINE
     Indication: Emotional distress
     Dosage: 200 MILLIGRAM (100 TABLETS)
  2. QUETIAPINE [Suspect]
     Active Substance: QUETIAPINE
     Indication: Emotional disorder
  3. VENLAFAXINE [Concomitant]
     Active Substance: VENLAFAXINE HYDROCHLORIDE
     Indication: Emotional distress
     Dosage: UNK
  4. VENLAFAXINE [Concomitant]
     Active Substance: VENLAFAXINE HYDROCHLORIDE
     Indication: Emotional disorder
  5. ARIPIPRAZOLE [Concomitant]
     Active Substance: ARIPIPRAZOLE
     Indication: Emotional distress
     Dosage: UNK
  6. ARIPIPRAZOLE [Concomitant]
     Active Substance: ARIPIPRAZOLE
     Indication: Emotional disorder
  7. LAMOTRIGINE [Concomitant]
     Active Substance: LAMOTRIGINE
     Indication: Emotional distress
     Dosage: UNK
  8. LAMOTRIGINE [Concomitant]
     Active Substance: LAMOTRIGINE
     Indication: Emotional disorder

REACTIONS (16)
  - Myoclonus [Recovered/Resolved]
  - Supraventricular tachycardia [Recovered/Resolved]
  - Nystagmus [Recovered/Resolved]
  - Mydriasis [Recovered/Resolved]
  - Hyperreflexia [Recovered/Resolved]
  - Hyperhidrosis [Recovered/Resolved]
  - Musculoskeletal stiffness [Recovered/Resolved]
  - Abdominal distension [Recovered/Resolved]
  - Gastrointestinal sounds abnormal [Recovered/Resolved]
  - Depressed level of consciousness [Recovered/Resolved]
  - Serotonin syndrome [Recovered/Resolved]
  - Drug abuse [Unknown]
  - Overdose [Recovered/Resolved]
  - Poisoning deliberate [Recovered/Resolved]
  - Loss of consciousness [Recovered/Resolved]
  - Intentional overdose [Recovered/Resolved]
